FAERS Safety Report 7556481-8 (Version None)
Quarter: 2011Q2

REPORT INFORMATION
  Report Type: 
  Country: None (occurrence: None)
  Receive Date: 20110615
  Receipt Date: 20110615
  Transmission Date: 20111010
  Serious: Yes (Other)
  Sender: FDA-Public Use
  Company Number: None

PATIENT
  Age: 65 Year
  Sex: Female

DRUGS (1)
  1. LISINOPRIL [Suspect]
     Dosage: 10MG

REACTIONS (5)
  - ANGIOEDEMA [None]
  - ANAPHYLACTIC REACTION [None]
  - HYPOTENSION [None]
  - DYSPNOEA [None]
  - BRADYCARDIA [None]
